FAERS Safety Report 5866554-3 (Version None)
Quarter: 2008Q3

REPORT INFORMATION
  Report Type: 
  Country: None (occurrence: None)
  Receive Date: 20080829
  Receipt Date: 20080829
  Transmission Date: 20090109
  Serious: Yes (Other)
  Sender: FDA-Public Use
  Company Number: None

PATIENT
  Sex: Male
  Weight: 84.2 kg

DRUGS (8)
  1. REVLIMID [Suspect]
     Indication: PROSTATE CANCER
     Dosage: 25 MG PO X 21 DAYS FOLLOWED BY 7 DAYS OFF
     Route: 048
     Dates: start: 20080617, end: 20080820
  2. FLOMAX [Concomitant]
  3. LISINOPRIL [Concomitant]
  4. HYDROCHLOROTHIAZIDE [Concomitant]
  5. ASPIRIN [Concomitant]
  6. LUPRON [Concomitant]
  7. LIPITOR [Concomitant]
  8. NOVOLOG [Concomitant]

REACTIONS (2)
  - RASH MACULO-PAPULAR [None]
  - URTICARIA [None]
